FAERS Safety Report 9270263 (Version 1)
Quarter: 2013Q2

REPORT INFORMATION
  Report Type: Spontaneous
  Country: US (occurrence: US)
  Receive Date: 20130503
  Receipt Date: 20130503
  Transmission Date: 20140414
  Serious: Yes (Hospitalization)
  Sender: FDA-Public Use
  Company Number: US-ABBOTT-13P-163-1081997-00

PATIENT
  Age: 70 Year
  Sex: Female
  Weight: 44.04 kg

DRUGS (6)
  1. HUMIRA [Suspect]
     Indication: RHEUMATOID ARTHRITIS
     Dates: start: 201302
  2. LEVOTHYROXINE [Concomitant]
     Indication: HYPOTHYROIDISM
  3. METHOTREXATE [Concomitant]
     Indication: RHEUMATOID ARTHRITIS
  4. LIOTHYRONINE [Concomitant]
     Indication: HYPOTHYROIDISM
  5. FOLIC ACID [Concomitant]
     Indication: PRODUCT USED FOR UNKNOWN INDICATION
  6. ALENDRONATE BONE FOSAMAX GENERIC [Concomitant]
     Indication: BONE DISORDER

REACTIONS (4)
  - Amnesia [Not Recovered/Not Resolved]
  - Transient ischaemic attack [Unknown]
  - Feeling abnormal [Not Recovered/Not Resolved]
  - Panic attack [Recovered/Resolved]
